FAERS Safety Report 24708536 (Version 1)
Quarter: 2024Q4

REPORT INFORMATION
  Report Type: Spontaneous
  Country: US (occurrence: US)
  Receive Date: 20241207
  Receipt Date: 20241207
  Transmission Date: 20250114
  Serious: No
  Sender: TEVA
  Company Number: US-TEVA-VS-3266555

PATIENT
  Age: 19 Year
  Sex: Female

DRUGS (2)
  1. AJOVY [Suspect]
     Active Substance: FREMANEZUMAB-VFRM
     Indication: Product used for unknown indication
     Dosage: 225/1.5MG/ML
     Route: 065
     Dates: start: 202410
  2. AJOVY [Suspect]
     Active Substance: FREMANEZUMAB-VFRM

REACTIONS (4)
  - Inappropriate schedule of product administration [Unknown]
  - Primary stabbing headache [Unknown]
  - Withdrawal syndrome [Unknown]
  - Product storage error [Unknown]
